FAERS Safety Report 8277782-4 (Version None)
Quarter: 2012Q2

REPORT INFORMATION
  Report Type: 
  Country: None (occurrence: None)
  Receive Date: 20120412
  Receipt Date: 20120404
  Transmission Date: 20120825
  Serious: Yes (Death, Other)
  Sender: FDA-Public Use
  Company Number: SE-ELI_LILLY_AND_COMPANY-SE201203000686

PATIENT
  Age: 21 Year
  Sex: Male

DRUGS (4)
  1. ZYPREXA [Suspect]
     Indication: PSYCHOTIC DISORDER
     Dosage: 40 MG, UNK
     Route: 048
     Dates: start: 20100801, end: 20101201
  2. ZOPIKLON [Concomitant]
     Indication: INSOMNIA
     Dosage: 7.5 MG, QD
  3. RISPERDAL [Concomitant]
     Dosage: 2 MG, BID
  4. ZYPREXA [Suspect]
     Dosage: 30 MG, QD
     Route: 048
     Dates: start: 20101201

REACTIONS (3)
  - CONVULSION [None]
  - OVERDOSE [None]
  - ARRHYTHMIA [None]
